FAERS Safety Report 6498016-7 (Version None)
Quarter: 2009Q4

REPORT INFORMATION
  Report Type: 
  Country: None (occurrence: None)
  Receive Date: 20091215
  Receipt Date: 20091203
  Transmission Date: 20100525
  Serious: Yes (Hospitalization, Other)
  Sender: FDA-Public Use
  Company Number: PHHY2009JP50487

PATIENT
  Sex: Male

DRUGS (10)
  1. VOLTAREN [Suspect]
     Indication: PYREXIA
     Dosage: 50 MG PER DAY
     Route: 054
     Dates: start: 20070126
  2. NAUZELIN [Concomitant]
     Indication: NAUSEA
     Dosage: 3 DF
     Route: 048
     Dates: start: 20070126, end: 20070129
  3. TRANSAMIN [Concomitant]
     Indication: PHARYNGEAL ERYTHEMA
     Dosage: UNK
     Route: 048
     Dates: start: 20070126, end: 20070129
  4. MAOTO [Concomitant]
     Indication: UPPER RESPIRATORY TRACT INFECTION
     Dosage: 7.5 G, UNK
     Route: 048
     Dates: start: 20070124, end: 20070126
  5. AVELOX [Concomitant]
     Indication: PNEUMONIA
     Dosage: 400 MG, UNK
     Route: 048
     Dates: start: 20070129
  6. HUSTAGIN [Concomitant]
     Indication: PRODUCTIVE COUGH
     Dosage: 2 MG, UNK
     Route: 048
     Dates: start: 20070129
  7. MEDICON [Concomitant]
     Indication: PRODUCTIVE COUGH
     Dosage: 0.6 MG, UNK
     Dates: start: 20070129
  8. MEPTIN [Concomitant]
     Indication: PRODUCTIVE COUGH
     Dosage: 0.3 MG, UNK
     Route: 048
     Dates: start: 20070129
  9. MUCODYNE [Concomitant]
     Indication: PRODUCTIVE COUGH
     Dosage: 3 DF
     Route: 048
     Dates: start: 20070129
  10. SOLDEM 3A [Concomitant]
     Dosage: 500 ML
     Route: 041

REACTIONS (10)
  - COUGH [None]
  - DECREASED APPETITE [None]
  - DYSPHAGIA [None]
  - HEADACHE [None]
  - OROPHARYNGEAL PAIN [None]
  - PHARYNGEAL ERYTHEMA [None]
  - PNEUMONIA [None]
  - PYREXIA [None]
  - SPUTUM PURULENT [None]
  - STEVENS-JOHNSON SYNDROME [None]
